FAERS Safety Report 12340058 (Version 1)
Quarter: 2016Q2

REPORT INFORMATION
  Report Type: Spontaneous
  Country: US (occurrence: US)
  Receive Date: 20160506
  Receipt Date: 20160506
  Transmission Date: 20160815
  Serious: Yes (Hospitalization, Other)
  Sender: FDA-Public Use
  Company Number: PHEH2016US010096

PATIENT
  Age: 37 Year
  Sex: Female

DRUGS (18)
  1. ZOFRAN [Concomitant]
     Active Substance: ONDANSETRON HYDROCHLORIDE
     Indication: NAUSEA
     Dosage: UNK UNK, PRN
     Route: 065
  2. GEMZAR [Concomitant]
     Active Substance: GEMCITABINE HYDROCHLORIDE
     Dosage: UNK
     Route: 065
     Dates: start: 20150310
  3. GEMZAR [Concomitant]
     Active Substance: GEMCITABINE HYDROCHLORIDE
     Indication: PRODUCT USED FOR UNKNOWN INDICATION
     Dosage: UNK
     Route: 065
     Dates: start: 201401, end: 201404
  4. NEULASTA [Concomitant]
     Active Substance: PEGFILGRASTIM
     Indication: PRODUCT USED FOR UNKNOWN INDICATION
     Dosage: UNK
     Route: 065
  5. GEMZAR [Concomitant]
     Active Substance: GEMCITABINE HYDROCHLORIDE
     Dosage: UNK
     Route: 065
     Dates: start: 20150616
  6. TAXOTERE [Concomitant]
     Active Substance: DOCETAXEL
     Dosage: UNK
     Route: 065
     Dates: start: 20150616
  7. PAZOPANIB [Suspect]
     Active Substance: PAZOPANIB
     Indication: METASTASES TO SPINE
  8. XALKORI [Suspect]
     Active Substance: CRIZOTINIB
     Indication: MALIGNANT CONNECTIVE TISSUE NEOPLASM
     Dosage: 1 DF, BID
     Route: 048
  9. XALKORI [Suspect]
     Active Substance: CRIZOTINIB
     Indication: CHOLANGIOCARCINOMA
  10. DECADRON [Concomitant]
     Active Substance: DEXAMETHASONE
     Indication: PRODUCT USED FOR UNKNOWN INDICATION
     Dosage: UNK
     Route: 065
  11. XALKORI [Suspect]
     Active Substance: CRIZOTINIB
     Indication: METASTASES TO LIVER
  12. PAZOPANIB [Suspect]
     Active Substance: PAZOPANIB
     Indication: LEIOMYOSARCOMA METASTATIC
     Dosage: UNK
     Route: 065
     Dates: start: 201404
  13. TAXOTERE [Concomitant]
     Active Substance: DOCETAXEL
     Dosage: UNK
     Route: 065
     Dates: start: 20150707
  14. XALKORI [Suspect]
     Active Substance: CRIZOTINIB
     Indication: SOFT TISSUE SARCOMA
  15. GEMZAR [Concomitant]
     Active Substance: GEMCITABINE HYDROCHLORIDE
     Dosage: UNK
     Route: 065
     Dates: start: 20150707
  16. TAXOTERE [Concomitant]
     Active Substance: DOCETAXEL
     Indication: PRODUCT USED FOR UNKNOWN INDICATION
     Dosage: UNK
     Route: 065
     Dates: start: 201401, end: 201404
  17. TAXOTERE [Concomitant]
     Active Substance: DOCETAXEL
     Dosage: UNK
     Route: 065
     Dates: start: 20150310
  18. PAZOPANIB [Suspect]
     Active Substance: PAZOPANIB
     Indication: METASTASES TO LIVER

REACTIONS (5)
  - Chest discomfort [Unknown]
  - Malignant neoplasm progression [Unknown]
  - Dyspnoea [Unknown]
  - Constipation [Unknown]
  - Pain in extremity [Not Recovered/Not Resolved]

NARRATIVE: CASE EVENT DATE: 201502
